FAERS Safety Report 4455928-3 (Version None)
Quarter: 2004Q3

REPORT INFORMATION
  Report Type: 
  Country: None (occurrence: None)
  Receive Date: 20040922
  Receipt Date: 20040914
  Transmission Date: 20050211
  Serious: Yes (Hospitalization)
  Sender: FDA-Public Use
  Company Number: PHBS2004JP12277

PATIENT
  Age: 63 Year
  Sex: Female

DRUGS (5)
  1. VOLTAREN-XR [Suspect]
     Indication: RHEUMATOID ARTHRITIS
     Dosage: 75 MG/DAY
     Route: 048
     Dates: start: 20040713, end: 20040902
  2. PREDNISONE [Concomitant]
  3. MINOMYCIN [Concomitant]
  4. ROCALTROL [Concomitant]
  5. ALENDRONATE SODIUM [Concomitant]
     Route: 048

REACTIONS (1)
  - INTERSTITIAL LUNG DISEASE [None]
